FAERS Safety Report 14427369 (Version 3)
Quarter: 2019Q2

REPORT INFORMATION
  Report Type: Spontaneous
  Country: US (occurrence: US)
  Receive Date: 20180123
  Receipt Date: 20190401
  Transmission Date: 20190711
  Serious: Yes (Other)
  Sender: FDA-Public Use
  Company Number: US-IMPAX LABORATORIES, INC-2017-IPXL-03327

PATIENT
  Age: 68 Year
  Sex: Male
  Weight: 78 kg

DRUGS (12)
  1. RYTARY [Suspect]
     Active Substance: CARBIDOPA\LEVODOPA
     Dosage: 3 CAPSULES OF 36.25MG/145MG TOGETHER WITH 1 CAPSULE OF 23.75MG/95MG
     Route: 048
     Dates: start: 2017
  2. RYTARY [Suspect]
     Active Substance: CARBIDOPA\LEVODOPA
     Dosage: FORTH DOSE: 23.75MG/95MG AS NEEDED
     Route: 048
     Dates: start: 2017
  3. RASAGILINE. [Concomitant]
     Active Substance: RASAGILINE
     Indication: PARKINSON^S DISEASE
     Dosage: 1 MG, ONE TIME
     Route: 065
  4. CLONAZEPAM. [Concomitant]
     Active Substance: CLONAZEPAM
     Indication: PARKINSON^S DISEASE
     Dosage: UNK
     Route: 065
  5. RYTARY [Suspect]
     Active Substance: CARBIDOPA\LEVODOPA
     Dosage: 36.25/145 MG 3 CAPSULES 3 TIMES A DAY AND 23.75/95MG 1 CAPSULES 3 TIMES A DAY
     Route: 048
     Dates: start: 2017
  6. RYTARY [Suspect]
     Active Substance: CARBIDOPA\LEVODOPA
     Dosage: SECOND DOSE: 2 CAPSULES OF 23.75MG/95MG
     Route: 048
     Dates: start: 2017
  7. RYTARY [Suspect]
     Active Substance: CARBIDOPA\LEVODOPA
     Dosage: FIRST DOSE:3 CAPSULES OF 36.25MG/145MG TOGETHER WITH 2 CAPSULES OF 23.75MG/95MG
     Route: 048
     Dates: start: 2017
  8. RYTARY [Suspect]
     Active Substance: CARBIDOPA\LEVODOPA
     Indication: PARKINSON^S DISEASE
     Dosage: 36.25/145 MG 3 CAPSULES 3 TIMES A DAY AND 23.75/95MG 2 CAPSULES 3 TIMES A DAY
     Route: 048
     Dates: start: 2017
  9. AMANTADINE. [Concomitant]
     Active Substance: AMANTADINE HYDROCHLORIDE
     Indication: PARKINSON^S DISEASE
     Dosage: UNK
     Route: 065
  10. RYTARY [Suspect]
     Active Substance: CARBIDOPA\LEVODOPA
     Dosage: FIRST DOSE: 3 CAPSULES OF 36.25MG/145MG
     Route: 048
     Dates: start: 2017
  11. RYTARY [Suspect]
     Active Substance: CARBIDOPA\LEVODOPA
     Dosage: SECOND DOSE: 3 CAPSULES OF 36.25MG/145MG WITH 1 CAPSULE OF 23.75/95 MG
     Route: 048
     Dates: start: 2017
  12. RYTARY [Suspect]
     Active Substance: CARBIDOPA\LEVODOPA
     Dosage: THIRD DOSE:3 CAPSULES OF 36.25MG/145MG TOGETHER WITH 1 CAPSULE OF 23.75MG/95MG
     Route: 048
     Dates: start: 2017

REACTIONS (6)
  - Intentional underdose [Unknown]
  - Therapeutic response shortened [Unknown]
  - Rash [Not Recovered/Not Resolved]
  - Tremor [Recovering/Resolving]
  - Orthostatic hypotension [Recovered/Resolved]
  - CD4 lymphocytes decreased [Not Recovered/Not Resolved]

NARRATIVE: CASE EVENT DATE: 2017
